FAERS Safety Report 21599628 (Version 1)
Quarter: 2022Q4

REPORT INFORMATION
  Report Type: Spontaneous
  Country: US (occurrence: None)
  Receive Date: 20221115
  Receipt Date: 20221115
  Transmission Date: 20230113
  Serious: Yes (Hospitalization)
  Sender: FDA-Public Use
  Company Number: None

PATIENT
  Age: 68 Year
  Sex: Female
  Weight: 80.74 kg

DRUGS (1)
  1. METHOTREXATE [Suspect]
     Active Substance: METHOTREXATE
     Indication: Arthritis
     Dosage: FREQUENCY : WEEKLY;?
     Route: 048
     Dates: start: 20211121, end: 20220914

REACTIONS (7)
  - Thrombocytopenia [None]
  - Leukopenia [None]
  - Anaemia [None]
  - Stomatitis [None]
  - Pancytopenia [None]
  - Delirium [None]
  - Blister [None]

NARRATIVE: CASE EVENT DATE: 20220914
